FAERS Safety Report 7318531-3 (Version None)
Quarter: 2011Q1

REPORT INFORMATION
  Report Type: 
  Country: None (occurrence: None)
  Receive Date: 20110228
  Receipt Date: 20110215
  Transmission Date: 20110831
  Serious: Yes (Other)
  Sender: FDA-Public Use
  Company Number: DE-JNJFOC-20110204884

PATIENT
  Age: 51 Year
  Sex: Male

DRUGS (2)
  1. CORTICOSTEROIDS [Concomitant]
     Indication: PRODUCT USED FOR UNKNOWN INDICATION
     Dosage: 13 YEARS
  2. INFLIXIMAB, RECOMBINANT [Suspect]
     Indication: PRODUCT USED FOR UNKNOWN INDICATION
     Dosage: 13 YEARS
     Route: 042

REACTIONS (5)
  - IMMUNE RECONSTITUTION SYNDROME [None]
  - WHIPPLE'S DISEASE [None]
  - BLINDNESS UNILATERAL [None]
  - INFLAMMATORY PSEUDOTUMOUR [None]
  - JEJUNAL PERFORATION [None]
